FAERS Safety Report 11649148 (Version 2)
Quarter: 2016Q1

REPORT INFORMATION
  Report Type: Report from Study
  Country: US (occurrence: US)
  Receive Date: 20151021
  Receipt Date: 20160105
  Transmission Date: 20160525
  Serious: Yes (Other)
  Sender: FDA-Public Use
  Company Number: US-GILEAD-2015-0177386

PATIENT
  Age: 50 Year
  Sex: Female

DRUGS (3)
  1. DULCOLAX (BISACODYL) [Concomitant]
     Active Substance: BISACODYL
  2. AMBRISENTAN [Suspect]
     Active Substance: AMBRISENTAN
     Indication: PULMONARY ARTERIAL HYPERTENSION
     Dosage: 10 MG, QD
     Route: 065
     Dates: start: 20150225
  3. VELETRI [Concomitant]
     Active Substance: EPOPROSTENOL

REACTIONS (6)
  - Fluid retention [Recovered/Resolved]
  - Pain [Recovering/Resolving]
  - Hypotension [Recovering/Resolving]
  - Cardiac tamponade [Unknown]
  - Fall [Unknown]
  - Wrist fracture [Unknown]

NARRATIVE: CASE EVENT DATE: 20141022
